FAERS Safety Report 9195416 (Version 1)
Quarter: 2013Q1

REPORT INFORMATION
  Report Type: Spontaneous
  Country: US (occurrence: US)
  Receive Date: 20130328
  Receipt Date: 20130328
  Transmission Date: 20140127
  Serious: No
  Sender: FDA-Public Use
  Company Number: US-ALLERGAN-1303063US

PATIENT
  Age: 79 Year
  Sex: Female

DRUGS (1)
  1. LUMIGAN? 0.01% [Suspect]
     Indication: OPEN ANGLE GLAUCOMA
     Dosage: 2 GTT, QHS
     Route: 047
     Dates: start: 201212

REACTIONS (8)
  - Dyspnoea [Recovering/Resolving]
  - Headache [Recovering/Resolving]
  - Foreign body sensation in eyes [Recovering/Resolving]
  - Eye swelling [Not Recovered/Not Resolved]
  - Rhinorrhoea [Recovered/Resolved]
  - Iris hyperpigmentation [Not Recovered/Not Resolved]
  - Eye irritation [Recovering/Resolving]
  - Eye pruritus [Recovering/Resolving]
